FAERS Safety Report 7301763-8 (Version None)
Quarter: 2011Q1

REPORT INFORMATION
  Report Type: 
  Country: None (occurrence: None)
  Receive Date: 20110218
  Receipt Date: 20110215
  Transmission Date: 20110831
  Serious: Yes (Disabling)
  Sender: FDA-Public Use
  Company Number: A0910711A

PATIENT
  Age: 24 Year
  Sex: Female

DRUGS (3)
  1. GEODON [Concomitant]
  2. WELLBUTRIN [Concomitant]
  3. LAMICTAL [Suspect]
     Indication: BIPOLAR DISORDER
     Dosage: 300MG SEE DOSAGE TEXT
     Route: 048

REACTIONS (2)
  - AGEUSIA [None]
  - ECZEMA [None]
